FAERS Safety Report 4696716-2 (Version None)
Quarter: 2005Q2

REPORT INFORMATION
  Report Type: 
  Country: None (occurrence: None)
  Receive Date: 20050620
  Receipt Date: 20050610
  Transmission Date: 20051028
  Serious: Yes (Hospitalization)
  Sender: FDA-Public Use
  Company Number: 2005US-00552

PATIENT
  Age: 49 Year
  Sex: Female

DRUGS (8)
  1. FLUOXETINE [Suspect]
     Dosage: 10MG, QD
  2. LEVOFLOXACIN [Concomitant]
  3. CEFTRIAXONE [Concomitant]
  4. IMIPRAMINE [Concomitant]
  5. HYDORCHOLROTHIAZIDE [Concomitant]
  6. GABAPENTIN [Concomitant]
  7. PROPRANOLOL [Concomitant]
  8. CARISOPRODOL [Concomitant]

REACTIONS (5)
  - CHEST DISCOMFORT [None]
  - DRUG INTERACTION [None]
  - DYSPNOEA [None]
  - ELECTROCARDIOGRAM QT CORRECTED INTERVAL PROLONGED [None]
  - ELECTROCARDIOGRAM QT PROLONGED [None]
